FAERS Safety Report 25373442 (Version 1)
Quarter: 2025Q2

REPORT INFORMATION
  Report Type: Spontaneous
  Country: US (occurrence: US)
  Receive Date: 20250529
  Receipt Date: 20250529
  Transmission Date: 20250716
  Serious: Yes (Hospitalization)
  Sender: PARI RESPIRATORY EQUIPMENT
  Company Number: US-PARI RESPIRATORY EQUIPMENT, INC.-2025PAR00040

PATIENT
  Sex: Male

DRUGS (6)
  1. KITABIS PAK [Suspect]
     Active Substance: TOBRAMYCIN
     Indication: Cystic fibrosis
     Dosage: 5 ML (300 MG TOTAL), 2X/DAY VIA NEBULIZER, FOR 28 DAYS ON AND 28 DAYS OFF
     Dates: start: 20210522
  2. PULMOZYME [Concomitant]
     Active Substance: DORNASE ALFA
  3. SYNAGIS [Concomitant]
     Active Substance: PALIVIZUMAB
  4. SYNAGIS [Concomitant]
     Active Substance: PALIVIZUMAB
  5. TRIKAFTA [Concomitant]
     Active Substance: ELEXACAFTOR\IVACAFTOR\TEZACAFTOR
  6. URSODIOL [Concomitant]
     Active Substance: URSODIOL

REACTIONS (1)
  - Gastrointestinal disorder [Unknown]
